FAERS Safety Report 6870145-5 (Version None)
Quarter: 2010Q3

REPORT INFORMATION
  Report Type: 
  Country: None (occurrence: None)
  Receive Date: 20100721
  Receipt Date: 20100707
  Transmission Date: 20110219
  Serious: Yes (Other)
  Sender: FDA-Public Use
  Company Number: 013901

PATIENT
  Sex: Male

DRUGS (3)
  1. XYZAL [Suspect]
     Indication: HYPERSENSITIVITY
     Dosage: (5 MG QD ORAL)
     Route: 048
  2. BUDESONIDE [Concomitant]
  3. NASONEX [Concomitant]

REACTIONS (1)
  - NIGHT SWEATS [None]
